FAERS Safety Report 9831866 (Version 1)
Quarter: 2014Q1

REPORT INFORMATION
  Report Type: Spontaneous
  Country: US (occurrence: US)
  Receive Date: 20140121
  Receipt Date: 20140121
  Transmission Date: 20141002
  Serious: No
  Sender: FDA-Public Use
  Company Number: US-PFIZER INC-2014014790

PATIENT
  Age: 57 Year
  Sex: Female
  Weight: 88.44 kg

DRUGS (2)
  1. CHANTIX [Suspect]
     Indication: SMOKING CESSATION THERAPY
     Dosage: UNK
     Route: 048
     Dates: start: 2012
  2. SPIRIVA [Concomitant]
     Indication: CHRONIC OBSTRUCTIVE PULMONARY DISEASE
     Dosage: UNK, 1X/DAY

REACTIONS (6)
  - Fatigue [Unknown]
  - Influenza like illness [Unknown]
  - Abnormal dreams [Unknown]
  - Malaise [Unknown]
  - Irritability [Unknown]
  - Feeling abnormal [Unknown]
